FAERS Safety Report 8019978-2 (Version None)
Quarter: 2012Q1

REPORT INFORMATION
  Report Type: 
  Country: None (occurrence: None)
  Receive Date: 20120103
  Receipt Date: 20111220
  Transmission Date: 20120608
  Serious: Yes (Other)
  Sender: FDA-Public Use
  Company Number: US-MYLANLABS-2011S1026521

PATIENT

DRUGS (1)
  1. MELPHALAN HYDROCHLORIDE [Suspect]
     Indication: RETINOBLASTOMA
     Route: 013

REACTIONS (4)
  - RETINAL ARTERY OCCLUSION [None]
  - IRIS NEOVASCULARISATION [None]
  - OCULAR VASCULAR DISORDER [None]
  - EYE EXCISION [None]
